FAERS Safety Report 24569531 (Version 1)
Quarter: 2024Q4

REPORT INFORMATION
  Report Type: Spontaneous
  Country: SK (occurrence: SK)
  Receive Date: 20241031
  Receipt Date: 20241031
  Transmission Date: 20250115
  Serious: Yes (Other)
  Sender: DAIICHI
  Company Number: SK-AstraZeneca-CH-00729557A

PATIENT
  Sex: Female

DRUGS (2)
  1. TRASTUZUMAB DERUXTECAN [Suspect]
     Active Substance: TRASTUZUMAB DERUXTECAN
     Indication: Product used for unknown indication
     Dosage: UNK, ONCE EVERY 3 WK
     Route: 042
     Dates: start: 20240501
  2. TAXOTERE [Concomitant]
     Active Substance: DOCETAXEL
     Indication: Breast cancer
     Dosage: UNK, AS NEEDED
     Route: 065
     Dates: start: 202209, end: 202304

REACTIONS (2)
  - Neuropathy peripheral [Unknown]
  - Headache [Unknown]
